FAERS Safety Report 5323858-0 (Version None)
Quarter: 2007Q2

REPORT INFORMATION
  Report Type: 
  Country: None (occurrence: None)
  Receive Date: 20070514
  Receipt Date: 20070510
  Transmission Date: 20071010
  Serious: Yes (Other)
  Sender: FDA-Public Use
  Company Number: D0052722A

PATIENT
  Age: 84 Year
  Sex: Male
  Weight: 76 kg

DRUGS (5)
  1. QUILONUM RETARD [Suspect]
     Indication: DEPRESSION
     Dosage: 450MG PER DAY
     Route: 048
     Dates: start: 20070320
  2. TENORMIN [Suspect]
     Dosage: 50MG PER DAY
     Route: 048
  3. HYDROCHLOROTHIAZIDE [Concomitant]
     Route: 065
  4. ZOPICLON [Concomitant]
     Dosage: 7.5MG PER DAY
     Route: 048
  5. LORAZEPAM [Concomitant]
     Dosage: 1MG THREE TIMES PER DAY
     Route: 048

REACTIONS (1)
  - ATRIOVENTRICULAR BLOCK FIRST DEGREE [None]
